FAERS Safety Report 8930427 (Version 2)
Quarter: 2013Q1

REPORT INFORMATION
  Report Type: Report from Study
  Country: US (occurrence: US)
  Receive Date: 20121128
  Receipt Date: 20130102
  Transmission Date: 20140127
  Serious: Yes (Death, Other)
  Sender: FDA-Public Use
  Company Number: US-ROCHE-1158344

PATIENT
  Sex: Male
  Weight: 91.62 kg

DRUGS (5)
  1. CAPECITABINE [Suspect]
     Indication: NEOPLASM MALIGNANT
     Route: 065
     Dates: start: 201001
  2. ALEVE [Concomitant]
     Indication: PAIN
     Route: 048
  3. GABAPENTIN [Concomitant]
     Route: 048
  4. TRAMADOL [Concomitant]
     Indication: PAIN
     Route: 048
  5. LIDODERM [Concomitant]
     Dosage: 700 MG, 1 PATCH
     Route: 062

REACTIONS (2)
  - Cholangiocarcinoma [Fatal]
  - Palmar-plantar erythrodysaesthesia syndrome [Recovered/Resolved]
